FAERS Safety Report 6135086-X (Version None)
Quarter: 2009Q1

REPORT INFORMATION
  Report Type: 
  Country: None (occurrence: None)
  Receive Date: 20090327
  Receipt Date: 20090319
  Transmission Date: 20090719
  Serious: Yes (Hospitalization)
  Sender: FDA-Public Use
  Company Number: FR-ASTRAZENECA-2009CG00556

PATIENT
  Age: 72 Year
  Sex: Female

DRUGS (4)
  1. ZESTORETIC [Suspect]
     Indication: HYPERTENSION
     Dosage: 20 + 12.5 MG ONCE DAILY
     Route: 048
     Dates: start: 20030101, end: 20090223
  2. LERCAN [Interacting]
     Indication: HYPERTENSION
     Route: 048
     Dates: start: 20030101, end: 20090224
  3. CORTANCYL [Concomitant]
     Indication: POLYMYALGIA RHEUMATICA
     Route: 048
     Dates: start: 20030101, end: 20090226
  4. DIFFU K [Concomitant]
     Indication: DIURETIC THERAPY
     Route: 048
     Dates: start: 20030101

REACTIONS (3)
  - DRUG INTERACTION [None]
  - ORTHOSTATIC HYPOTENSION [None]
  - RENAL FAILURE ACUTE [None]
